FAERS Safety Report 4563267-5 (Version None)
Quarter: 2005Q1

REPORT INFORMATION
  Report Type: 
  Country: None (occurrence: None)
  Receive Date: 20050125
  Receipt Date: 20050114
  Transmission Date: 20050727
  Serious: Yes (Other)
  Sender: FDA-Public Use
  Company Number: 2005-01-1024

PATIENT
  Sex: Male

DRUGS (4)
  1. CLARITIN [Suspect]
     Dosage: 20 MG ORAL
     Route: 048
     Dates: start: 20041026, end: 20041118
  2. POLARAMINE [Concomitant]
  3. TOUGHMAC E [Concomitant]
  4. CAMOSTAT MESYLATE [Concomitant]

REACTIONS (2)
  - ALOPECIA [None]
  - MADAROSIS [None]
